FAERS Safety Report 25871188 (Version 1)
Quarter: 2025Q4

REPORT INFORMATION
  Report Type: Spontaneous
  Country: US (occurrence: US)
  Receive Date: 20251001
  Receipt Date: 20251001
  Transmission Date: 20260117
  Serious: No
  Sender: GALDERMA
  Company Number: US-GALDERMA-US2025017271

PATIENT

DRUGS (3)
  1. NEMLUVIO [Suspect]
     Active Substance: NEMOLIZUMAB-ILTO
     Indication: Neurodermatitis
     Dosage: UNK, LOADING DOSE, EVERY 28 DAYS
     Route: 058
     Dates: start: 20250630, end: 20250630
  2. NEMLUVIO [Suspect]
     Active Substance: NEMOLIZUMAB-ILTO
     Dosage: UNK, MAINTENANCE DOSE, EVERY 28 DAYS
     Route: 058
     Dates: start: 20250827, end: 20250827
  3. ALENDRONATE [Concomitant]
     Active Substance: ALENDRONATE SODIUM
     Indication: Osteoporosis
     Dosage: UNK, QWK

REACTIONS (4)
  - Rash [Unknown]
  - Purulent discharge [Unknown]
  - Rash papular [Unknown]
  - Erythema [Unknown]

NARRATIVE: CASE EVENT DATE: 20250101
